FAERS Safety Report 8483491-9 (Version None)
Quarter: 2012Q3

REPORT INFORMATION
  Report Type: 
  Country: None (occurrence: None)
  Receive Date: 20120702
  Receipt Date: 20120702
  Transmission Date: 20120928
  Serious: Yes (Death, Other)
  Sender: FDA-Public Use
  Company Number: PHHO2012IN006300

PATIENT
  Sex: Female
  Weight: 61.5 kg

DRUGS (17)
  1. BLINDED GP2013 [Suspect]
     Dosage: CODE NOT BROKEN
     Dates: start: 20111220
  2. BLINDED NO TREATMENT RECEIVED [Suspect]
     Dosage: CODE NOT BROKEN
     Dates: start: 20111220
  3. FOLIC ACID [Concomitant]
     Indication: RHEUMATOID ARTHRITIS
     Dosage: 10 MG, QW
     Dates: start: 20100730
  4. PREDNISOLONE [Concomitant]
     Indication: RHEUMATOID ARTHRITIS
     Dosage: 5 MG, QD
     Dates: start: 20100730
  5. GLIMEPIRIDE W/METFORMIN [Concomitant]
     Indication: DIABETES MELLITUS
     Dosage: 1 DF, QD
     Dates: start: 20060101
  6. METHOTREXATE [Suspect]
     Indication: RHEUMATOID ARTHRITIS
     Dosage: 20 MG, QW
     Dates: start: 20100913
  7. SULFASALAZINE [Concomitant]
     Indication: RHEUMATOID ARTHRITIS
     Dosage: 1000 MG, BID
     Dates: start: 20100814
  8. ISONIAZID [Concomitant]
     Indication: LATENT TUBERCULOSIS
     Dosage: 300 MG, QD
     Dates: start: 20111125
  9. IRON PENTACARBONYL [Concomitant]
     Indication: MINERAL SUPPLEMENTATION
     Dosage: 1 DF, QD
     Dates: start: 20100913
  10. BLINDED MABTHERA [Suspect]
     Dosage: CODE NOT BROKEN
     Dates: start: 20111220
  11. CALCIUM CARBONATE [Concomitant]
     Indication: MINERAL SUPPLEMENTATION
     Dosage: 1000 MG, QD
     Dates: start: 20100730
  12. PYRIDOXINE HCL [Concomitant]
     Indication: LATENT TUBERCULOSIS
     Dosage: 20 MG, QD
     Dates: start: 20111125
  13. ACETAMINOPHEN [Concomitant]
     Indication: RHEUMATOID ARTHRITIS
     Dosage: UNK
     Dates: start: 20100730
  14. RABEPRAZOLE SODIUM [Concomitant]
     Indication: RHEUMATOID ARTHRITIS
     Dosage: UNK
     Dates: start: 20100730
  15. TELMISARTAN AND HYDROCHLOROTHIAZIDE [Concomitant]
     Indication: HYPERTENSION
     Dosage: 1 DF, QD
     Dates: start: 20060101
  16. HYDROXYCHLOROQUINE SULFATE [Concomitant]
     Indication: RHEUMATOID ARTHRITIS
     Dosage: 200 MG, QD
     Dates: start: 20100730
  17. ACECLOFENAC [Concomitant]
     Indication: RHEUMATOID ARTHRITIS
     Dosage: UNK DF, BID
     Dates: start: 20100730

REACTIONS (5)
  - BONE MARROW FAILURE [None]
  - MULTI-ORGAN FAILURE [None]
  - SEPSIS [None]
  - SEPTIC SHOCK [None]
  - OVERDOSE [None]
